FAERS Safety Report 14048819 (Version 2)
Quarter: 2017Q4

REPORT INFORMATION
  Report Type: Report from Study
  Country: AR (occurrence: ZA)
  Receive Date: 20171005
  Receipt Date: 20171208
  Transmission Date: 20180321
  Serious: Yes (Death, Life-Threatening, Hospitalization, Other)
  Sender: FDA-Public Use
  Company Number: AR-GILEAD-2017-0296159

PATIENT
  Age: 44 Year
  Sex: Female
  Weight: 59.8 kg

DRUGS (8)
  1. EMTRICITABINE/TENOFOVIR DISOPROXIL FUMARATE [Suspect]
     Active Substance: EMTRICITABINE\TENOFOVIR DISOPROXIL FUMARATE
     Indication: HIV INFECTION
     Dosage: 300/200MG, QD
     Route: 048
     Dates: start: 20141201, end: 20141208
  2. VITAMIN B COMPLEX [Concomitant]
     Active Substance: CYANOCOBALAMIN\DEXPANTHENOL\NIACINAMIDE\PYRIDOXINE HYDROCHLORIDE\RIBOFLAVIN 5^-PHOSPHATE SODIUM\THIAMINE HYDROCHLORIDE\VITAMIN B COMPLEX
     Dosage: 29 DF, UNK
     Dates: start: 20140929, end: 20150105
  3. ASCORBIC ACID. [Concomitant]
     Active Substance: ASCORBIC ACID
     Dosage: 1 DF, UNK
     Dates: start: 20140929, end: 201412
  4. PANADO [Concomitant]
     Active Substance: ACETAMINOPHEN
     Dosage: 500 MG, UNK
     Dates: start: 20141128, end: 20150105
  5. BRUFEN                             /00109201/ [Concomitant]
     Active Substance: IBUPROFEN
     Dosage: 400 MG, UNK
     Dates: start: 20141201, end: 201412
  6. BACTRIM [Concomitant]
     Active Substance: SULFAMETHOXAZOLE\TRIMETHOPRIM
     Dosage: 1 DF, UNK
     Dates: start: 20140929, end: 20141230
  7. NUR-ISTERATE [Concomitant]
     Dosage: 200 MG, UNK
     Dates: start: 20141201, end: 20150105
  8. RALTEGRAVIR. [Suspect]
     Active Substance: RALTEGRAVIR
     Indication: HIV INFECTION
     Dosage: 1200 MG, QD
     Route: 048
     Dates: start: 20141201, end: 20141208

REACTIONS (1)
  - Immune reconstitution inflammatory syndrome associated tuberculosis [Fatal]

NARRATIVE: CASE EVENT DATE: 20141208
